FAERS Safety Report 19809657 (Version 1)
Quarter: 2021Q3

REPORT INFORMATION
  Report Type: Other
  Country: US (occurrence: US)
  Receive Date: 20210908
  Receipt Date: 20210908
  Transmission Date: 20211014
  Serious: No
  Sender: FDA-Public Use
  Company Number: US-ROCHE-2723746

PATIENT
  Age: 60 Year
  Sex: Female

DRUGS (5)
  1. BRIGATINIB [Concomitant]
     Active Substance: BRIGATINIB
     Route: 065
     Dates: start: 201811
  2. ALECTINIB. [Suspect]
     Active Substance: ALECTINIB
     Indication: METASTASES TO LIVER
  3. BRIGATINIB [Concomitant]
     Active Substance: BRIGATINIB
     Route: 065
  4. ALECTINIB. [Suspect]
     Active Substance: ALECTINIB
     Indication: METASTASES TO CENTRAL NERVOUS SYSTEM
  5. ALECTINIB. [Suspect]
     Active Substance: ALECTINIB
     Indication: LUNG ADENOCARCINOMA STAGE IV
     Route: 065

REACTIONS (2)
  - Anaplastic lymphoma kinase gene mutation [Unknown]
  - Drug resistance [Unknown]
